FAERS Safety Report 4940697-0 (Version None)
Quarter: 2006Q1

REPORT INFORMATION
  Report Type: 
  Country: None (occurrence: None)
  Receive Date: 20060313
  Receipt Date: 20051117
  Transmission Date: 20060701
  Serious: Yes (Hospitalization)
  Sender: FDA-Public Use
  Company Number: US-BOEHRINGER INGELHEIM PHARMACEUTICALS, INC.-2005-BP-20380BP

PATIENT
  Age: 79 Year
  Sex: Female

DRUGS (4)
  1. AGGRENOX [Suspect]
     Indication: TRANSIENT ISCHAEMIC ATTACK
     Route: 048
     Dates: start: 20051029, end: 20051029
  2. SYNTHROID [Concomitant]
  3. LIPITOR [Concomitant]
  4. SINEMET [Concomitant]

REACTIONS (2)
  - ATRIOVENTRICULAR BLOCK [None]
  - HYPERSENSITIVITY [None]
